FAERS Safety Report 5299933-6 (Version None)
Quarter: 2007Q2

REPORT INFORMATION
  Report Type: 
  Country: None (occurrence: None)
  Receive Date: 20070410
  Receipt Date: 20070402
  Transmission Date: 20071010
  Serious: Yes (Hospitalization)
  Sender: FDA-Public Use
  Company Number: D0052612A

PATIENT
  Age: 70 Year
  Sex: Female
  Weight: 64.8644 kg

DRUGS (6)
  1. AVANDIA [Suspect]
     Indication: DIABETES MELLITUS NON-INSULIN-DEPENDENT
     Dosage: UNK / UNKNOWN / ORAL
     Route: 048
  2. METFORMIN HYDROCHLORIDE [Concomitant]
  3. AMLODIPINE [Concomitant]
  4. TORSEMIDE [Concomitant]
  5. ASPIRIN [Concomitant]
  6. SIMVASTATIN [Concomitant]

REACTIONS (3)
  - COMMINUTED FRACTURE [None]
  - FOOT FRACTURE [None]
  - UPPER LIMB FRACTURE [None]
